FAERS Safety Report 9485231 (Version 2)
Quarter: 2013Q3

REPORT INFORMATION
  Report Type: Spontaneous
  Country: US (occurrence: US)
  Receive Date: 20130828
  Receipt Date: 20130917
  Transmission Date: 20140515
  Serious: Yes (Other)
  Sender: FDA-Public Use
  Company Number: US-TEVA-427949USA

PATIENT
  Age: 43 Year
  Sex: Female
  Weight: 69.46 kg

DRUGS (1)
  1. PARAGARD 380A [Suspect]
     Indication: CONTRACEPTION
     Route: 015
     Dates: start: 20030902, end: 20130821

REACTIONS (1)
  - Medical device complication [Recovered/Resolved]
